FAERS Safety Report 9717957 (Version 2)
Quarter: 2013Q4

REPORT INFORMATION
  Report Type: Spontaneous
  Country: US (occurrence: None)
  Receive Date: 20131125
  Receipt Date: 20131203
  Transmission Date: 20140711
  Serious: Yes (Other)
  Sender: FDA-Public Use
  Company Number: 2013SA120070

PATIENT
  Age: 41 Year
  Sex: Female

DRUGS (1)
  1. ICY HOT POWER GEL / UNKNOWN / UNKNOWN [Suspect]
     Indication: BACK PAIN
     Dates: start: 20131117

REACTIONS (3)
  - Application site burn [None]
  - Skin exfoliation [None]
  - Chemical injury [None]
